FAERS Safety Report 15009946 (Version 1)
Quarter: 2018Q2

REPORT INFORMATION
  Report Type: Spontaneous
  Country: US (occurrence: US)
  Receive Date: 20180614
  Receipt Date: 20180614
  Transmission Date: 20180711
  Serious: Yes (Other)
  Sender: FDA-Public Use
  Company Number: US-BAYER-2017-196769

PATIENT
  Age: 30 Year
  Sex: Female

DRUGS (1)
  1. MIRENA [Suspect]
     Active Substance: LEVONORGESTREL
     Indication: CONTRACEPTION
     Dosage: 20 MCG/24HR, CONT
     Route: 015
     Dates: start: 201607

REACTIONS (9)
  - Pelvic pain [Unknown]
  - Abortion of ectopic pregnancy [Unknown]
  - Urinary tract infection [Unknown]
  - Device ineffective [Unknown]
  - Ectopic pregnancy with contraceptive device [Unknown]
  - Drug ineffective [Unknown]
  - Fatigue [Unknown]
  - Vaginal infection [Unknown]
  - Cystitis [Unknown]

NARRATIVE: CASE EVENT DATE: 201704
